FAERS Safety Report 4319359-9 (Version None)
Quarter: 2004Q1

REPORT INFORMATION
  Report Type: 
  Country: None (occurrence: None)
  Receive Date: 20040319
  Receipt Date: 20040123
  Transmission Date: 20041129
  Serious: Yes (Hospitalization)
  Sender: FDA-Public Use
  Company Number: PHEH2004US01125

PATIENT
  Age: 65 Year
  Sex: Female
  Weight: 37 kg

DRUGS (5)
  1. MIACALCIN [Suspect]
     Indication: OSTEOPOROSIS
     Dosage: 200 IU, QD
     Dates: start: 19960101, end: 20030601
  2. ALBUTEROL [Concomitant]
  3. XANAX [Concomitant]
  4. TYLOX [Concomitant]
  5. CALCIUM WITH VITAMIN D [Concomitant]

REACTIONS (8)
  - DIZZINESS [None]
  - HEADACHE [None]
  - NASOPHARYNGEAL SURGERY [None]
  - NAUSEA [None]
  - PHARMACEUTICAL PRODUCT COMPLAINT [None]
  - SINUSITIS BACTERIAL [None]
  - SINUSITIS FUNGAL [None]
  - VOMITING [None]
